FAERS Safety Report 8188808-0 (Version None)
Quarter: 2012Q1

REPORT INFORMATION
  Report Type: 
  Country: None (occurrence: None)
  Receive Date: 20120306
  Receipt Date: 20120221
  Transmission Date: 20120608
  Serious: Yes (Other)
  Sender: FDA-Public Use
  Company Number: TR-WATSON-2012-03699

PATIENT
  Sex: Male
  Weight: 2.19 kg

DRUGS (1)
  1. DEFEROXAMINE MESYLATE [Suspect]
     Indication: IRON OVERLOAD
     Dosage: 25 MG/KG/DAY

REACTIONS (2)
  - ANAEMIA [None]
  - NEUTROPENIA [None]
